FAERS Safety Report 6998915-3 (Version None)
Quarter: 2010Q3

REPORT INFORMATION
  Report Type: 
  Country: None (occurrence: None)
  Receive Date: 20100920
  Receipt Date: 20091214
  Transmission Date: 20110219
  Serious: Yes (Other)
  Sender: FDA-Public Use
  Company Number: US-ASTRAZENECA-2007UW14326

PATIENT
  Age: 3348 Day
  Sex: Female
  Weight: 52.2 kg

DRUGS (19)
  1. SEROQUEL [Suspect]
     Indication: SLEEP DISORDER
     Dosage: 25MG - 100MG DAILY
     Route: 048
     Dates: start: 20050801, end: 20060616
  2. SEROQUEL [Suspect]
     Indication: SEX CHROMOSOME ABNORMALITY
     Dosage: 25MG - 100MG DAILY
     Route: 048
     Dates: start: 20050801, end: 20060616
  3. SEROQUEL [Suspect]
     Indication: ASPERGER'S DISORDER
     Dosage: 25MG - 100MG DAILY
     Route: 048
     Dates: start: 20050801, end: 20060616
  4. SEROQUEL [Suspect]
     Route: 048
     Dates: start: 20050801
  5. SEROQUEL [Suspect]
     Route: 048
     Dates: start: 20050801
  6. SEROQUEL [Suspect]
     Route: 048
     Dates: start: 20050801
  7. AMOXICILLIN [Concomitant]
     Dosage: 400MG PER 5ML
     Dates: start: 20031020
  8. PAROXETINE HYDROCHLORIDE [Concomitant]
     Dates: start: 20030918
  9. HYDROCODONE [Concomitant]
     Dosage: EVERY 4-6 HOURS
     Dates: start: 20060322
  10. DIAZEPAM [Concomitant]
     Dates: start: 20060323
  11. ZOLOFT [Concomitant]
     Dosage: 25MG - 100MG
     Dates: start: 20060121
  12. SULFAMETHOXAZOLE [Concomitant]
     Dates: start: 20060711
  13. LORAZEPAM [Concomitant]
     Dates: start: 20060905
  14. GEODON [Concomitant]
     Dates: start: 20060615
  15. DETROL LA [Concomitant]
     Dates: start: 20060118
  16. LEXAPRO [Concomitant]
     Dates: start: 20061206
  17. LORATADINE [Concomitant]
     Dates: start: 20060201
  18. RANITIDINE [Concomitant]
     Dates: start: 20060630
  19. CLONIDINE HYDROCHLORIDE [Concomitant]
     Dates: start: 20060714

REACTIONS (2)
  - DIABETIC KETOACIDOSIS [None]
  - TYPE 2 DIABETES MELLITUS [None]
